FAERS Safety Report 4930846-2 (Version None)
Quarter: 2006Q1

REPORT INFORMATION
  Report Type: 
  Country: None (occurrence: None)
  Receive Date: 20060302
  Receipt Date: 20060228
  Transmission Date: 20060701
  Serious: Yes (Hospitalization)
  Sender: FDA-Public Use
  Company Number: IE-BOEHRINGER INGELHEIM PHARMACEUTICALS, INC.-2006-UK-00853UK

PATIENT
  Age: 92 Year
  Sex: Female

DRUGS (3)
  1. SPIRIVA [Suspect]
     Indication: CHRONIC OBSTRUCTIVE PULMONARY DISEASE
     Dosage: 18 MCG DAILY
  2. CLACID [Concomitant]
     Dosage: HIGH DOSE
  3. AUGMENTIN '125' [Concomitant]
     Dosage: HIGH DOSE

REACTIONS (1)
  - RENAL FAILURE [None]
